FAERS Safety Report 9711269 (Version 1)
Quarter: 2013Q4

REPORT INFORMATION
  Report Type: Spontaneous
  Country: US (occurrence: US)
  Receive Date: 20131126
  Receipt Date: 20131126
  Transmission Date: 20140711
  Serious: No
  Sender: FDA-Public Use
  Company Number: US-BRISTOL-MYERS SQUIBB COMPANY-19055177

PATIENT
  Age: 71 Year
  Sex: Male
  Weight: 158.73 kg

DRUGS (1)
  1. BYDUREON [Suspect]
     Indication: TYPE 2 DIABETES MELLITUS
     Dates: start: 201305

REACTIONS (2)
  - Injection site swelling [Not Recovered/Not Resolved]
  - Off label use [Unknown]
